FAERS Safety Report 7700100-4 (Version None)
Quarter: 2011Q3

REPORT INFORMATION
  Report Type: 
  Country: None (occurrence: None)
  Receive Date: 20110822
  Receipt Date: 20110810
  Transmission Date: 20111222
  Serious: Yes (Hospitalization)
  Sender: FDA-Public Use
  Company Number: US-JNJFOC-20110712044

PATIENT
  Sex: Female
  Weight: 24 kg

DRUGS (5)
  1. REMICADE [Suspect]
     Route: 042
     Dates: start: 20101111
  2. MERCAPTOPURINE [Concomitant]
  3. REMICADE [Suspect]
     Indication: CROHN'S DISEASE
     Route: 042
     Dates: start: 20080814
  4. FERROUS SULFATE TAB [Concomitant]
  5. MULTI-VITAMINS [Concomitant]

REACTIONS (1)
  - FAILURE TO THRIVE [None]
